FAERS Safety Report 4957267-0 (Version None)
Quarter: 2006Q1

REPORT INFORMATION
  Report Type: 
  Country: None (occurrence: None)
  Receive Date: 20060329
  Receipt Date: 20051215
  Transmission Date: 20060701
  Serious: Yes (Hospitalization, Disabling)
  Sender: FDA-Public Use
  Company Number: US-MERCK-0512USA02564

PATIENT
  Age: 43 Year
  Sex: Male
  Weight: 115 kg

DRUGS (8)
  1. VIOXX [Suspect]
     Indication: RHEUMATOID ARTHRITIS
     Route: 048
     Dates: start: 20020228, end: 20030101
  2. HYDROCODONE BITARTRATE + ACETAMINOPHEN [Concomitant]
     Route: 065
     Dates: start: 20010729, end: 20040401
  3. HYDROCODONE BITARTRATE + ACETAMINOPHEN [Concomitant]
     Route: 065
     Dates: start: 20050612, end: 20050801
  4. ARTHROTEC [Concomitant]
     Route: 065
     Dates: start: 20020822, end: 20030101
  5. VICODIN [Concomitant]
     Route: 065
     Dates: start: 20010808, end: 20030601
  6. ACETAMINOPHEN AND PROPOXYPHENE NAPSYLATE [Concomitant]
     Route: 065
     Dates: start: 20021201, end: 20050701
  7. CELEBREX [Concomitant]
     Route: 065
     Dates: start: 20021125, end: 20040301
  8. NAPROXEN [Concomitant]
     Route: 065

REACTIONS (5)
  - ARTHRALGIA [None]
  - BLOOD CHOLESTEROL INCREASED [None]
  - CHEST PAIN [None]
  - HYPERTENSION [None]
  - MYOCARDIAL INFARCTION [None]
